FAERS Safety Report 8238213-3 (Version None)
Quarter: 2012Q1

REPORT INFORMATION
  Report Type: 
  Country: None (occurrence: None)
  Receive Date: 20120327
  Receipt Date: 20120322
  Transmission Date: 20120608
  Serious: Yes (Hospitalization)
  Sender: FDA-Public Use
  Company Number: TR-ABBOTT-12P-161-0917931-00

PATIENT
  Age: 46 Year
  Sex: Female
  Weight: 70 kg

DRUGS (1)
  1. FENOFIBRATE [Suspect]
     Indication: DYSLIPIDAEMIA
     Route: 048
     Dates: start: 20120321, end: 20120322

REACTIONS (4)
  - URTICARIA [None]
  - SWELLING FACE [None]
  - ERYTHEMA [None]
  - EYE SWELLING [None]
